FAERS Safety Report 18948779 (Version 3)
Quarter: 2021Q2

REPORT INFORMATION
  Report Type: Report from Study
  Country: US (occurrence: US)
  Receive Date: 20210227
  Receipt Date: 20210617
  Transmission Date: 20210717
  Serious: Yes (Hospitalization, Other)
  Sender: FDA-Public Use
  Company Number: US-TAKEDA-2021TUS011263

PATIENT
  Age: 2 Year
  Sex: Male
  Weight: 13.2 kg

DRUGS (16)
  1. TEDUGLUTIDE [Suspect]
     Active Substance: TEDUGLUTIDE
     Indication: GASTROINTESTINAL DISORDER
     Dosage: 0.0575 MILLILITER, QD
     Route: 058
     Dates: start: 202009
  2. TEDUGLUTIDE [Suspect]
     Active Substance: TEDUGLUTIDE
     Dosage: 0.0575 MILLILITER, QD
     Route: 058
     Dates: start: 20200929
  3. TEDUGLUTIDE [Suspect]
     Active Substance: TEDUGLUTIDE
     Indication: SHORT-BOWEL SYNDROME
     Dosage: 0.575 MILLIGRAM, QD
     Route: 058
     Dates: start: 20200928
  4. TEDUGLUTIDE [Suspect]
     Active Substance: TEDUGLUTIDE
     Indication: SHORT-BOWEL SYNDROME
     Dosage: 0.575 MILLIGRAM, QD
     Route: 058
     Dates: start: 20200928
  5. TEDUGLUTIDE [Suspect]
     Active Substance: TEDUGLUTIDE
     Indication: GASTROINTESTINAL DISORDER
     Dosage: 0.0575 MILLILITER, QD
     Route: 058
     Dates: start: 202009
  6. TEDUGLUTIDE [Suspect]
     Active Substance: TEDUGLUTIDE
     Indication: GASTROINTESTINAL DISORDER
     Dosage: 0.0575 MILLILITER, QD
     Route: 058
     Dates: start: 202009
  7. TEDUGLUTIDE [Suspect]
     Active Substance: TEDUGLUTIDE
     Dosage: 0.025
     Route: 065
     Dates: start: 20201001
  8. TEDUGLUTIDE [Suspect]
     Active Substance: TEDUGLUTIDE
     Dosage: 0.0575 MILLILITER, QD
     Route: 058
     Dates: start: 20200929
  9. TEDUGLUTIDE [Suspect]
     Active Substance: TEDUGLUTIDE
     Dosage: 0.025
     Route: 065
     Dates: start: 20201001
  10. TEDUGLUTIDE [Suspect]
     Active Substance: TEDUGLUTIDE
     Indication: SHORT-BOWEL SYNDROME
     Dosage: 0.575 MILLIGRAM, QD
     Route: 058
     Dates: start: 20200928
  11. TEDUGLUTIDE [Suspect]
     Active Substance: TEDUGLUTIDE
     Dosage: 0.0575 MILLILITER, QD
     Route: 058
     Dates: start: 20200929
  12. TEDUGLUTIDE [Suspect]
     Active Substance: TEDUGLUTIDE
     Dosage: 0.0575 MILLILITER, QD
     Route: 058
     Dates: start: 20200929
  13. TEDUGLUTIDE [Suspect]
     Active Substance: TEDUGLUTIDE
     Dosage: 0.025
     Route: 065
     Dates: start: 20201001
  14. TEDUGLUTIDE [Suspect]
     Active Substance: TEDUGLUTIDE
     Indication: SHORT-BOWEL SYNDROME
     Dosage: 0.575 MILLIGRAM, QD
     Route: 058
     Dates: start: 20200928
  15. TEDUGLUTIDE [Suspect]
     Active Substance: TEDUGLUTIDE
     Indication: GASTROINTESTINAL DISORDER
     Dosage: 0.0575 MILLILITER, QD
     Route: 058
     Dates: start: 202009
  16. TEDUGLUTIDE [Suspect]
     Active Substance: TEDUGLUTIDE
     Dosage: 0.025
     Route: 065
     Dates: start: 20201001

REACTIONS (4)
  - Liver function test increased [Recovered/Resolved]
  - Bacteraemia [Recovered/Resolved]
  - Sepsis [Recovered/Resolved]
  - Dehydration [Recovered/Resolved]

NARRATIVE: CASE EVENT DATE: 20210510
